FAERS Safety Report 16697839 (Version 1)
Quarter: 2019Q4

REPORT INFORMATION
  Report Type: Spontaneous
  Country: US (occurrence: US)
  Receive Date: 20190812
  Receipt Date: 20190812
  Transmission Date: 20200122
  Serious: Yes (Disabling, Other)
  Sender: FDA-Public Use
  Company Number: None

PATIENT
  Sex: Female

DRUGS (1)
  1. LO LOESTRIN FE [Suspect]
     Active Substance: ETHINYL ESTRADIOL\NORETHINDRONE ACETATE
     Indication: METRORRHAGIA
     Route: 048
     Dates: start: 20190805, end: 20190811

REACTIONS (6)
  - Headache [None]
  - Paraesthesia [None]
  - Nocturnal dyspnoea [None]
  - Contact lens intolerance [None]
  - Depression [None]
  - Metrorrhagia [None]

NARRATIVE: CASE EVENT DATE: 20190810
